FAERS Safety Report 15879585 (Version 1)
Quarter: 2019Q1

REPORT INFORMATION
  Report Type: Spontaneous
  Country: US (occurrence: US)
  Receive Date: 20190127
  Receipt Date: 20190127
  Transmission Date: 20190417
  Serious: Yes (Other)
  Sender: FDA-Public Use
  Company Number: None

PATIENT
  Age: 52 Year
  Sex: Male
  Weight: 71.1 kg

DRUGS (6)
  1. NUCYNTA [Concomitant]
     Active Substance: TAPENTADOL HYDROCHLORIDE
  2. FENTANYL. [Concomitant]
     Active Substance: FENTANYL
  3. CLONIDINE. [Concomitant]
     Active Substance: CLONIDINE
  4. TEMAZEPAM 30 MG GENERIC FOR RESTORIL [Suspect]
     Active Substance: TEMAZEPAM
     Indication: SLEEP DISORDER
     Dosage: ?          QUANTITY:2 CAPSULE(S);?
     Route: 048
  5. ADVIL [Concomitant]
     Active Substance: IBUPROFEN
  6. AMLODIPINE [Concomitant]
     Active Substance: AMLODIPINE BESYLATE

REACTIONS (11)
  - Product substitution issue [None]
  - Loss of consciousness [None]
  - Panic reaction [None]
  - Memory impairment [None]
  - Hypersomnia [None]
  - Fall [None]
  - Abnormal behaviour [None]
  - Insomnia [None]
  - Depressed level of consciousness [None]
  - Somnambulism [None]
  - Hangover [None]

NARRATIVE: CASE EVENT DATE: 20190126
